FAERS Safety Report 5062016-4 (Version None)
Quarter: 2006Q3

REPORT INFORMATION
  Report Type: 
  Country: None (occurrence: None)
  Receive Date: 20060726
  Receipt Date: 20060714
  Transmission Date: 20061208
  Serious: Yes (Hospitalization)
  Sender: FDA-Public Use
  Company Number: 2006AP03272

PATIENT
  Age: 24404 Day
  Sex: Male

DRUGS (5)
  1. IRESSA [Suspect]
     Indication: LUNG NEOPLASM MALIGNANT
     Route: 048
     Dates: start: 20050429, end: 20050521
  2. GEMZAR [Concomitant]
     Indication: LUNG NEOPLASM MALIGNANT
  3. CARBOPLATIN [Concomitant]
     Indication: LUNG NEOPLASM MALIGNANT
  4. DOCETAXEL [Concomitant]
     Indication: LUNG NEOPLASM MALIGNANT
  5. FLUOROURACIL [Concomitant]
     Indication: LUNG NEOPLASM MALIGNANT

REACTIONS (4)
  - BLOOD ALBUMIN DECREASED [None]
  - BLOOD GLUCOSE INCREASED [None]
  - BLOOD LACTATE DEHYDROGENASE INCREASED [None]
  - PNEUMONIA [None]
